FAERS Safety Report 9713184 (Version 2)
Quarter: 2013Q4

REPORT INFORMATION
  Report Type: Spontaneous
  Country: US (occurrence: US)
  Receive Date: 20131126
  Receipt Date: 20131126
  Transmission Date: 20140711
  Serious: Yes (Hospitalization)
  Sender: FDA-Public Use
  Company Number: US-ASTELLAS-2013US007953

PATIENT
  Age: 88 Year
  Sex: Female
  Weight: 53 kg

DRUGS (6)
  1. LEXISCAN [Suspect]
     Indication: SCAN MYOCARDIAL PERFUSION
     Dosage: UNK
     Route: 042
     Dates: start: 20130716
  2. COUMADIN                           /00014802/ [Concomitant]
     Indication: PRODUCT USED FOR UNKNOWN INDICATION
     Dosage: UNK
     Route: 065
  3. LASIX                              /00032601/ [Concomitant]
     Indication: PRODUCT USED FOR UNKNOWN INDICATION
     Dosage: UNK
     Route: 065
  4. TECHNETIUM (99M TC) SESTAMIBI [Concomitant]
     Indication: SCAN MYOCARDIAL PERFUSION
     Dosage: 10.2 MCI, TOTAL DOSE
     Route: 042
     Dates: start: 20130716, end: 20130716
  5. TECHNETIUM (99M TC) SESTAMIBI [Concomitant]
     Dosage: 28.1 MCI, TOTAL DOSE
     Route: 042
     Dates: start: 20130716, end: 20130716
  6. PERSANTINE [Concomitant]
     Indication: SCAN MYOCARDIAL PERFUSION
     Dosage: 29.949 MG, TOTAL DOSE
     Route: 042
     Dates: start: 20130716, end: 20130716

REACTIONS (1)
  - Myocardial infarction [Recovering/Resolving]
